FAERS Safety Report 23529876 (Version 1)
Quarter: 2024Q1

REPORT INFORMATION
  Report Type: Spontaneous
  Country: US (occurrence: US)
  Receive Date: 20240216
  Receipt Date: 20240216
  Transmission Date: 20240410
  Serious: No
  Sender: FDA-Public Use
  Company Number: US-OTSUKA-2023_024170

PATIENT
  Age: 13 Year
  Sex: Male

DRUGS (17)
  1. BUSULFAN [Suspect]
     Active Substance: BUSULFAN
     Indication: Allogenic stem cell transplantation
     Dosage: UNK
     Route: 065
  2. BUSULFAN [Suspect]
     Active Substance: BUSULFAN
     Indication: Acute myeloid leukaemia
  3. BUSULFAN [Suspect]
     Active Substance: BUSULFAN
     Indication: Bone marrow conditioning regimen
  4. FLUDARABINE [Concomitant]
     Active Substance: FLUDARABINE PHOSPHATE
     Indication: Allogenic stem cell transplantation
     Dosage: UNK
     Route: 065
  5. FLUDARABINE [Concomitant]
     Active Substance: FLUDARABINE PHOSPHATE
     Indication: Acute myeloid leukaemia
  6. FLUDARABINE [Concomitant]
     Active Substance: FLUDARABINE PHOSPHATE
     Indication: Bone marrow conditioning regimen
  7. CLOFARABINE [Concomitant]
     Active Substance: CLOFARABINE
     Indication: Allogenic stem cell transplantation
     Dosage: UNK
     Route: 065
  8. CLOFARABINE [Concomitant]
     Active Substance: CLOFARABINE
     Indication: Acute myeloid leukaemia
  9. CLOFARABINE [Concomitant]
     Active Substance: CLOFARABINE
     Indication: Bone marrow conditioning regimen
  10. THIOTEPA [Concomitant]
     Active Substance: THIOTEPA
     Indication: Bone marrow conditioning regimen
     Dosage: UNK
     Route: 065
  11. THIOTEPA [Concomitant]
     Active Substance: THIOTEPA
     Indication: Acute myeloid leukaemia
  12. THIOTEPA [Concomitant]
     Active Substance: THIOTEPA
     Indication: Allogenic stem cell transplantation
  13. TREOSULFAN [Concomitant]
     Active Substance: TREOSULFAN
     Indication: Bone marrow conditioning regimen
     Dosage: UNK
     Route: 065
  14. TREOSULFAN [Concomitant]
     Active Substance: TREOSULFAN
     Indication: Acute myeloid leukaemia
  15. TREOSULFAN [Concomitant]
     Active Substance: TREOSULFAN
     Indication: Allogenic stem cell transplantation
  16. TACROLIMUS [Concomitant]
     Active Substance: TACROLIMUS
     Indication: Prophylaxis against graft versus host disease
     Dosage: UNK
     Route: 065
  17. PREDNISOLONE [Concomitant]
     Active Substance: PREDNISOLONE
     Indication: Prophylaxis against graft versus host disease
     Dosage: UNK
     Route: 065

REACTIONS (1)
  - Product use in unapproved indication [Unknown]
